FAERS Safety Report 16728702 (Version 2)
Quarter: 2019Q3

REPORT INFORMATION
  Report Type: Spontaneous
  Country: US (occurrence: US)
  Receive Date: 20190822
  Receipt Date: 20190911
  Transmission Date: 20191005
  Serious: No
  Sender: FDA-Public Use
  Company Number: US-ELI_LILLY_AND_COMPANY-US201908006549

PATIENT
  Sex: Female

DRUGS (2)
  1. CALCIUM [Concomitant]
     Active Substance: CALCIUM
     Indication: PRODUCT USED FOR UNKNOWN INDICATION
  2. FORTEO [Suspect]
     Active Substance: TERIPARATIDE
     Indication: OSTEOPOROSIS
     Dosage: UNK UNK, UNKNOWN
     Route: 065
     Dates: start: 201812

REACTIONS (8)
  - Burning sensation [Unknown]
  - Dyspepsia [Recovering/Resolving]
  - Injection site haemorrhage [Recovered/Resolved]
  - Sleep disorder due to general medical condition, insomnia type [Unknown]
  - Injection site bruising [Not Recovered/Not Resolved]
  - Gastrooesophageal reflux disease [Unknown]
  - Injection site pain [Recovered/Resolved]
  - Muscle spasms [Not Recovered/Not Resolved]

NARRATIVE: CASE EVENT DATE: 201812
